FAERS Safety Report 6188872-4 (Version None)
Quarter: 2009Q2

REPORT INFORMATION
  Report Type: 
  Country: None (occurrence: None)
  Receive Date: 20090513
  Receipt Date: 20090504
  Transmission Date: 20091009
  Serious: Yes (Other)
  Sender: FDA-Public Use
  Company Number: PHHY2009BR17089

PATIENT
  Age: 63 Year
  Sex: Male
  Weight: 70 kg

DRUGS (1)
  1. TRILEPTAL [Suspect]
     Indication: PARTIAL SEIZURES
     Dosage: 1 TABLET IN MORNING, ? TABLET AT 1400, 1 TABLET AT NIGHT
     Dates: start: 20080901

REACTIONS (2)
  - ARTIFICIAL CROWN PROCEDURE [None]
  - TOOTH FRACTURE [None]
